FAERS Safety Report 5958162-0 (Version None)
Quarter: 2008Q4

REPORT INFORMATION
  Report Type: 
  Country: None (occurrence: None)
  Receive Date: 20081117
  Receipt Date: 20081103
  Transmission Date: 20090506
  Serious: Yes (Other)
  Sender: FDA-Public Use
  Company Number: DSA_32650_2008

PATIENT
  Sex: Male

DRUGS (1)
  1. LORAX /002873201/ (LORAX-LORAZEPAM) (NOT SPECIFIED) [Suspect]
     Indication: PANIC DISORDER
     Dosage: (8 TO 14 MG DAILY ORAL)
     Route: 048
     Dates: start: 19880101

REACTIONS (8)
  - CHEST DISCOMFORT [None]
  - DRUG DEPENDENCE [None]
  - DRUG WITHDRAWAL SYNDROME [None]
  - DRY MOUTH [None]
  - DYSPNOEA [None]
  - INTENTIONAL OVERDOSE [None]
  - MUSCLE SPASMS [None]
  - VISION BLURRED [None]
